FAERS Safety Report 4675909-4 (Version None)
Quarter: 2005Q2

REPORT INFORMATION
  Report Type: 
  Country: None (occurrence: None)
  Receive Date: 20050527
  Receipt Date: 20050517
  Transmission Date: 20051028
  Serious: Yes (Hospitalization)
  Sender: FDA-Public Use
  Company Number: DE-JNJFOC-20040504278

PATIENT
  Age: 72 Year
  Sex: Female
  Weight: 65 kg

DRUGS (7)
  1. REMICADE [Suspect]
     Indication: POLYARTHRITIS
     Route: 042
  2. MARCUMAR [Suspect]
     Indication: DRUG USE FOR UNKNOWN INDICATION
  3. METHOTREXATE [Suspect]
     Indication: POLYARTHRITIS
     Route: 042
  4. METYJOVED [Concomitant]
     Route: 049
  5. ALENDRONAT [Concomitant]
     Route: 042
  6. ROFECOXIB [Concomitant]
     Route: 049
  7. DECORTIN [Concomitant]
     Dosage: 20MG MAX DAILY

REACTIONS (6)
  - DIVERTICULUM INTESTINAL HAEMORRHAGIC [None]
  - DRUG INTERACTION [None]
  - PNEUMONIA [None]
  - PULMONARY TUBERCULOSIS [None]
  - TUBERCULOSIS [None]
  - WEIGHT DECREASED [None]
